FAERS Safety Report 8166872-2 (Version None)
Quarter: 2012Q1

REPORT INFORMATION
  Report Type: 
  Country: None (occurrence: None)
  Receive Date: 20120227
  Receipt Date: 20120215
  Transmission Date: 20120608
  Serious: Yes (Hospitalization)
  Sender: FDA-Public Use
  Company Number: JP-AMGEN-JPNCT2011055001

PATIENT
  Age: 71 Year
  Sex: Female
  Weight: 36 kg

DRUGS (14)
  1. LEVOLEUCOVORIN CALCIUM [Suspect]
     Indication: COLORECTAL CANCER
     Dosage: 230 MG, Q2WK
     Route: 041
     Dates: start: 20100707, end: 20100728
  2. LEVOLEUCOVORIN CALCIUM [Suspect]
     Route: 041
     Dates: start: 20110302, end: 20110330
  3. PANITUMUMAB [Suspect]
     Dosage: 6 MG/KG, Q2WK
     Route: 041
     Dates: start: 20101017, end: 20110330
  4. ADALAT [Concomitant]
     Route: 048
  5. LIVALO [Concomitant]
     Route: 051
  6. TOPOTECAN [Suspect]
     Indication: COLORECTAL CANCER
     Route: 041
     Dates: start: 20100707, end: 20100728
  7. FLUOROURACIL [Suspect]
     Route: 041
     Dates: start: 20110302, end: 20110330
  8. OXALIPLATIN [Suspect]
     Indication: COLORECTAL CANCER
     Route: 041
     Dates: start: 20110302, end: 20110330
  9. DIOVAN [Concomitant]
     Route: 048
  10. PANITUMUMAB [Suspect]
     Indication: COLORECTAL CANCER
     Dosage: 6 MG/KG, Q2WK
     Route: 041
     Dates: start: 20100707, end: 20100728
  11. PANITUMUMAB [Suspect]
     Dosage: 6 MG/KG, Q2WK
     Route: 041
     Dates: start: 20100819, end: 20101020
  12. FLUOROURACIL [Suspect]
     Indication: COLORECTAL CANCER
     Route: 040
     Dates: start: 20100707, end: 20100728
  13. FLUOROURACIL [Suspect]
     Route: 041
     Dates: start: 20100707, end: 20100728
  14. FLUOROURACIL [Suspect]
     Route: 040
     Dates: start: 20110302, end: 20110330

REACTIONS (6)
  - CONVULSION [None]
  - DRY SKIN [None]
  - WHITE BLOOD CELL COUNT DECREASED [None]
  - PARONYCHIA [None]
  - BLOOD CALCIUM DECREASED [None]
  - NEUTROPHIL COUNT DECREASED [None]
